FAERS Safety Report 6630765-X (Version None)
Quarter: 2010Q1

REPORT INFORMATION
  Report Type: 
  Country: None (occurrence: None)
  Receive Date: 20100310
  Receipt Date: 20100310
  Transmission Date: 20100710
  Serious: No
  Sender: FDA-Public Use
  Company Number: None

PATIENT
  Age: 77 Year
  Sex: Male

DRUGS (1)
  1. PACLITAXEL [Suspect]
     Dosage: 400 MG ONCE IV
     Route: 042
     Dates: start: 20100304, end: 20100304

REACTIONS (4)
  - CHEST PAIN [None]
  - ERYTHEMA [None]
  - FLUSHING [None]
  - HYPERTENSION [None]
